FAERS Safety Report 4366647-6 (Version None)
Quarter: 2004Q2

REPORT INFORMATION
  Report Type: 
  Country: None (occurrence: None)
  Receive Date: 20040524
  Receipt Date: 20040513
  Transmission Date: 20050107
  Serious: Yes (Hospitalization)
  Sender: FDA-Public Use
  Company Number: 8017

PATIENT
  Age: 51 Year
  Sex: Male

DRUGS (4)
  1. LEUCOVORIN CALCIUM [Suspect]
     Dates: start: 20040216
  2. FLUOROURACIL [Suspect]
     Dates: start: 20040216
  3. OXALIPLATIN [Suspect]
     Dates: start: 20040216
  4. PLACEBO VS PTK787/ZK 22584 [Concomitant]

REACTIONS (4)
  - ABDOMINAL ABSCESS [None]
  - CELLULITIS [None]
  - SECONDARY IMMUNODEFICIENCY [None]
  - WOUND ABSCESS [None]
